APPROVED DRUG PRODUCT: FEMARA
Active Ingredient: LETROZOLE
Strength: 2.5MG
Dosage Form/Route: TABLET;ORAL
Application: N020726 | Product #001 | TE Code: AB
Applicant: NOVARTIS PHARMACEUTICALS CORP
Approved: Jul 25, 1997 | RLD: Yes | RS: Yes | Type: RX